FAERS Safety Report 4621111-1 (Version None)
Quarter: 2005Q1

REPORT INFORMATION
  Report Type: 
  Country: None (occurrence: None)
  Receive Date: 20050325
  Receipt Date: 20050316
  Transmission Date: 20050727
  Serious: Yes (Death, Life-Threatening, Other)
  Sender: FDA-Public Use
  Company Number: 2005026902

PATIENT
  Age: 46 Year
  Sex: Female

DRUGS (6)
  1. NIFEDICRON PROLONGED RELEASE CAPSULE (NIFEDIPINE) [Suspect]
     Indication: ILL-DEFINED DISORDER
     Dosage: ORAL
     Route: 048
     Dates: start: 20040901, end: 20050117
  2. SODIUM AUROTHIOMALATE (SODIUM AUROTHIOMALATE) [Suspect]
     Indication: RHEUMATOID ARTHRITIS
     Dosage: INTRAMUSCULAR
     Route: 030
     Dates: start: 20050117, end: 20050117
  3. PROMETHAZINE HYDROCHLORIDE TAB [Concomitant]
  4. LEVOMEPROMAZINE MALEATE (LEVOMEPROMAZINE MALEATE) [Concomitant]
  5. RISPERDAL [Concomitant]
  6. NETILMICIN SULFATE (NETILMICIN SULFATE) [Concomitant]

REACTIONS (7)
  - ERYTHEMA [None]
  - FACE OEDEMA [None]
  - OLIGURIA [None]
  - PYREXIA [None]
  - RENAL DISORDER [None]
  - SHOCK [None]
  - UNEVALUABLE EVENT [None]
